FAERS Safety Report 10647022 (Version 1)
Quarter: 2014Q4

REPORT INFORMATION
  Report Type: Spontaneous
  Country: US (occurrence: US)
  Receive Date: 20141211
  Receipt Date: 20141211
  Transmission Date: 20150529
  Serious: No
  Sender: FDA-Public Use
  Company Number: US-INCYTE CORPORATION-2014IN002985

PATIENT
  Sex: Female
  Weight: 83.45 kg

DRUGS (10)
  1. POTASSIUM CLORIDE 40 [Concomitant]
  2. SYMBICORT [Concomitant]
     Active Substance: BUDESONIDE\FORMOTEROL FUMARATE DIHYDRATE
  3. INSPRA [Concomitant]
     Active Substance: EPLERENONE
  4. PRAVASTATIN [Concomitant]
     Active Substance: PRAVASTATIN\PRAVASTATIN SODIUM
  5. CLONAZEPAM. [Concomitant]
     Active Substance: CLONAZEPAM
  6. JAKAFI [Suspect]
     Active Substance: RUXOLITINIB
     Indication: MYELOFIBROSIS
     Dosage: 15 MG, BID
     Route: 048
     Dates: start: 20140906
  7. SINGULAIR [Concomitant]
     Active Substance: MONTELUKAST SODIUM
  8. ZYRTEC [Concomitant]
     Active Substance: CETIRIZINE HYDROCHLORIDE
  9. CARDIZEM [Concomitant]
     Active Substance: DILTIAZEM HYDROCHLORIDE
  10. LASIX [Concomitant]
     Active Substance: FUROSEMIDE

REACTIONS (1)
  - Adverse event [Unknown]
